FAERS Safety Report 4864899-7 (Version None)
Quarter: 2005Q4

REPORT INFORMATION
  Report Type: 
  Country: None (occurrence: None)
  Receive Date: 20051201
  Receipt Date: 20050812
  Transmission Date: 20060501
  Serious: No
  Sender: FDA-Public Use
  Company Number: 2005PV001129

PATIENT
  Age: 50 Year
  Sex: Female

DRUGS (5)
  1. BYETTA [Suspect]
     Indication: DIABETES MELLITUS NON-INSULIN-DEPENDENT
     Dosage: 5 MCG; BID; SC
     Route: 058
     Dates: start: 20050810, end: 20050812
  2. METFORMIN [Concomitant]
  3. BIRTH CONTROL PILL [Concomitant]
  4. COZAAR [Concomitant]
  5. INSULIN [Concomitant]

REACTIONS (3)
  - BLOOD GLUCOSE INCREASED [None]
  - NAUSEA [None]
  - VOMITING [None]
